FAERS Safety Report 4661031-X (Version None)
Quarter: 2005Q2

REPORT INFORMATION
  Report Type: 
  Country: None (occurrence: None)
  Receive Date: 20050511
  Receipt Date: 20050427
  Transmission Date: 20051028
  Serious: Yes (Hospitalization)
  Sender: FDA-Public Use
  Company Number: 2005BI001468

PATIENT
  Age: 43 Year
  Sex: Male
  Weight: 71.6683 kg

DRUGS (11)
  1. AVONEX [Suspect]
     Indication: RELAPSING-REMITTING MULTIPLE SCLEROSIS
     Dosage: 30 UG;QW;IM
     Route: 030
     Dates: start: 20000201
  2. NATALIZUMAB [Suspect]
     Indication: RELAPSING-REMITTING MULTIPLE SCLEROSIS
     Dosage: 300 MG;QW;IV
     Route: 042
     Dates: start: 20041217, end: 20050114
  3. WELLBUTRIN [Concomitant]
  4. PROVIGIL [Concomitant]
  5. SKELAXIN [Concomitant]
  6. VIAGRA [Concomitant]
  7. AMBIEN [Concomitant]
  8. ALEVE [Concomitant]
  9. VIT C TAB [Concomitant]
  10. TYLENOL (CAPLET) [Concomitant]
  11. VITAMIN E [Concomitant]

REACTIONS (9)
  - ANGIONEUROTIC OEDEMA [None]
  - CHEST PAIN [None]
  - CHILLS [None]
  - DYSPEPSIA [None]
  - DYSPHAGIA [None]
  - ERYTHEMA OF EYELID [None]
  - EYELID OEDEMA [None]
  - RASH PRURITIC [None]
  - SWOLLEN TONGUE [None]
